FAERS Safety Report 14202325 (Version 5)
Quarter: 2018Q4

REPORT INFORMATION
  Report Type: Report from Study
  Country: US (occurrence: US)
  Receive Date: 20171117
  Receipt Date: 20181126
  Transmission Date: 20190204
  Serious: Yes (Other)
  Sender: FDA-Public Use
  Company Number: US-ACTELION-A-NJ2015-123875

PATIENT
  Age: 68 Year
  Sex: Female
  Weight: 63.49 kg

DRUGS (3)
  1. METFORMIN [Concomitant]
     Active Substance: METFORMIN HYDROCHLORIDE
  2. OPSUMIT [Suspect]
     Active Substance: MACITENTAN
     Indication: PULMONARY ARTERIAL HYPERTENSION
     Dosage: 10 MG, QD
     Route: 048
     Dates: start: 20140131
  3. OPSUMIT [Suspect]
     Active Substance: MACITENTAN
     Dosage: UNK
     Route: 048

REACTIONS (14)
  - Syncope [Unknown]
  - Immunodeficiency [Unknown]
  - Lymphadenopathy [Unknown]
  - Gastroenteritis salmonella [Unknown]
  - Pharyngitis streptococcal [Unknown]
  - Herpes zoster [Unknown]
  - Nasopharyngitis [Unknown]
  - White blood cell count decreased [Unknown]
  - Biopsy liver [Unknown]
  - Rash [Unknown]
  - Pyrexia [Unknown]
  - Pericardial effusion [Unknown]
  - Steroid therapy [Unknown]
  - Infection [Unknown]
